FAERS Safety Report 8167853-5 (Version None)
Quarter: 2012Q1

REPORT INFORMATION
  Report Type: 
  Country: None (occurrence: None)
  Receive Date: 20120227
  Receipt Date: 20120217
  Transmission Date: 20120608
  Serious: Yes (Other)
  Sender: FDA-Public Use
  Company Number: US-BAYER-2012-016692

PATIENT
  Age: 67 Year
  Sex: Male
  Weight: 147 kg

DRUGS (3)
  1. ANTIHYPERTENSIVES [Concomitant]
  2. ASPIRIN [Concomitant]
  3. ALKA-SELTZER PLUS DAY,ALKA-SELTZER PLUS NIGHT [Suspect]
     Indication: NASOPHARYNGITIS
     Dosage: 2 DF, UNK
     Route: 048
     Dates: start: 20120215, end: 20120216

REACTIONS (4)
  - NAUSEA [None]
  - LOSS OF CONSCIOUSNESS [None]
  - RETCHING [None]
  - NASOPHARYNGITIS [None]
